FAERS Safety Report 8519965-1 (Version None)
Quarter: 2012Q3

REPORT INFORMATION
  Report Type: 
  Country: None (occurrence: None)
  Receive Date: 20120719
  Receipt Date: 20120706
  Transmission Date: 20120928
  Serious: Yes (Hospitalization)
  Sender: FDA-Public Use
  Company Number: JP-AMGEN-JPNSP2012043159

PATIENT
  Age: 75 Year
  Sex: Female
  Weight: 54.3 kg

DRUGS (6)
  1. ENBREL [Suspect]
     Indication: RHEUMATOID ARTHRITIS
     Dosage: 25 MG, 2X/WEEK
     Route: 058
     Dates: start: 20110831, end: 20120528
  2. RHEUMATREX [Concomitant]
     Dosage: UNK UNK, UNK
  3. FOLIAMIN [Concomitant]
     Dosage: UNK UNK, UNK
  4. HYPEN                              /00613801/ [Concomitant]
     Dosage: UNK UNK, UNK
  5. PREDNISOLONE [Concomitant]
     Dosage: UNK UNK, UNK
  6. AMLODIPINE [Concomitant]
     Dosage: UNK UNK, UNK

REACTIONS (1)
  - PANCREATITIS [None]
